FAERS Safety Report 16658614 (Version 1)
Quarter: 2019Q3

REPORT INFORMATION
  Report Type: Report from Study
  Country: US (occurrence: US)
  Receive Date: 20190801
  Receipt Date: 20190801
  Transmission Date: 20191004
  Serious: Yes (Hospitalization)
  Sender: FDA-Public Use
  Company Number: US-PFIZER INC-2019326981

PATIENT
  Age: 2 Year
  Sex: Female
  Weight: 13 kg

DRUGS (8)
  1. CYTARABINE. [Suspect]
     Active Substance: CYTARABINE
     Indication: ACUTE LYMPHOCYTIC LEUKAEMIA RECURRENT
     Dosage: 1000 MG/M2, 2X/DAY
     Route: 042
     Dates: start: 20190514, end: 20190518
  2. VENETOCLAX. [Suspect]
     Active Substance: VENETOCLAX
     Dosage: 250 MG, 1X/DAY
     Route: 045
     Dates: start: 20190522
  3. VINCRISTINE SULFATE. [Suspect]
     Active Substance: VINCRISTINE SULFATE
     Indication: ACUTE LYMPHOCYTIC LEUKAEMIA RECURRENT
     Dosage: 2 MG/M2, UNK
     Route: 042
     Dates: start: 20190523, end: 20190530
  4. VENETOCLAX. [Suspect]
     Active Substance: VENETOCLAX
     Dosage: 120 MG, 1X/DAY
     Route: 045
     Dates: start: 20190521, end: 20190521
  5. PEG/L-ASPARAGINASE [Suspect]
     Active Substance: PEGASPARGASE
     Indication: ACUTE LYMPHOCYTIC LEUKAEMIA RECURRENT
     Dosage: 2500 IU/M2
     Route: 042
     Dates: start: 20190524, end: 20190524
  6. D5 1/2 NS [Concomitant]
     Indication: PROPHYLAXIS
     Dosage: 1000 ML, UNK
     Route: 042
     Dates: start: 20190513, end: 20190520
  7. ALLOPURINOL. [Concomitant]
     Active Substance: ALLOPURINOL
     Indication: PROPHYLAXIS
     Dosage: UNK
     Dates: start: 20190514, end: 20190522
  8. VENETOCLAX. [Suspect]
     Active Substance: VENETOCLAX
     Indication: ACUTE LYMPHOCYTIC LEUKAEMIA RECURRENT
     Dosage: 50 MG, 1X/DAY
     Route: 045
     Dates: start: 20190520, end: 20190520

REACTIONS (1)
  - Febrile neutropenia [Recovered/Resolved]

NARRATIVE: CASE EVENT DATE: 20190601
